FAERS Safety Report 10190791 (Version 1)
Quarter: 2014Q2

REPORT INFORMATION
  Report Type: Spontaneous
  Country: IN (occurrence: IN)
  Receive Date: 20140523
  Receipt Date: 20140523
  Transmission Date: 20141212
  Serious: Yes (Death)
  Sender: FDA-Public Use
  Company Number: IN-009507513-1405IND009543

PATIENT
  Age: 58 Year
  Sex: Male
  Weight: 56 kg

DRUGS (1)
  1. JANUMET [Suspect]
     Dosage: STRENGTH 50/500 UNITS, FREQUENCY 1/DAY
     Route: 048

REACTIONS (2)
  - Death [Fatal]
  - Incorrect dose administered [Unknown]
